FAERS Safety Report 7808834-8 (Version None)
Quarter: 2011Q4

REPORT INFORMATION
  Report Type: 
  Country: None (occurrence: None)
  Receive Date: 20111012
  Receipt Date: 20111006
  Transmission Date: 20120403
  Serious: Yes (Death, Other)
  Sender: FDA-Public Use
  Company Number: PHEH2009US07549

PATIENT
  Sex: Male

DRUGS (12)
  1. LEXAPRO [Concomitant]
  2. COMPAZINE [Concomitant]
  3. WARFARIN SODIUM [Concomitant]
  4. ALLOPURINOL [Concomitant]
  5. HYDROCODONE BITARTRATE [Concomitant]
  6. VELCADE [Concomitant]
  7. MS CONTIN [Concomitant]
  8. AREDIA [Suspect]
     Dosage: 90 MG,
  9. ZOMETA [Suspect]
     Dosage: 4 MG,
  10. OXYCONTIN [Concomitant]
  11. DOXIL [Concomitant]
  12. DEXAMETHASONE [Concomitant]

REACTIONS (53)
  - OSTEONECROSIS OF JAW [None]
  - DISABILITY [None]
  - ROAD TRAFFIC ACCIDENT [None]
  - INTERVERTEBRAL DISC DEGENERATION [None]
  - FATIGUE [None]
  - LYMPHOMA [None]
  - MITRAL VALVE INCOMPETENCE [None]
  - TRICUSPID VALVE INCOMPETENCE [None]
  - GASTROOESOPHAGEAL REFLUX DISEASE [None]
  - DEATH [None]
  - ANHEDONIA [None]
  - ARTHRITIS [None]
  - PLASMACYTOMA [None]
  - PAIN IN EXTREMITY [None]
  - HYPERTENSION [None]
  - SINUSITIS [None]
  - BACK PAIN [None]
  - HYPOTENSION [None]
  - VERTEBRAL FORAMINAL STENOSIS [None]
  - METASTASES TO BONE [None]
  - ATELECTASIS [None]
  - BONE NEOPLASM MALIGNANT [None]
  - RENAL CYST [None]
  - ABDOMINAL PAIN [None]
  - CONSTIPATION [None]
  - FALL [None]
  - SKIN CANCER [None]
  - PHRENIC NERVE PARALYSIS [None]
  - ANXIETY [None]
  - DYSPNOEA [None]
  - DEPRESSION [None]
  - RENAL MASS [None]
  - CANDIDIASIS [None]
  - LYMPHADENOPATHY [None]
  - PAIN [None]
  - OSTEOLYSIS [None]
  - LUNG INFILTRATION [None]
  - CHEST PAIN [None]
  - NAUSEA [None]
  - SWELLING [None]
  - DECREASED APPETITE [None]
  - BONE PAIN [None]
  - INTERVERTEBRAL DISC PROTRUSION [None]
  - NEOPLASM MALIGNANT [None]
  - BRONCHITIS CHRONIC [None]
  - RENAL FAILURE [None]
  - RENAL ATROPHY [None]
  - INJURY [None]
  - MULTIPLE MYELOMA [None]
  - ANAEMIA [None]
  - DEEP VEIN THROMBOSIS [None]
  - METASTASES TO MUSCLE [None]
  - OSTEITIS [None]
